FAERS Safety Report 8367591-X (Version None)
Quarter: 2012Q1

REPORT INFORMATION
  Report Type: 
  Country: None (occurrence: None)
  Receive Date: 20120323
  Receipt Date: 20111121
  Transmission Date: 20120608
  Serious: Yes (Hospitalization)
  Sender: FDA-Public Use
  Company Number: 163-21880-11111936

PATIENT
  Age: 73 Year
  Sex: Female

DRUGS (1)
  1. REVLIMID [Suspect]
     Indication: MULTIPLE MYELOMA
     Dosage: 10 MG, QD X 21 DAYS AND 7 DAYS OFF, PO
     Route: 048
     Dates: start: 20110922, end: 20110101

REACTIONS (3)
  - FULL BLOOD COUNT DECREASED [None]
  - LEUKOPENIA [None]
  - CHOLECYSTITIS ACUTE [None]
